FAERS Safety Report 12508291 (Version 1)
Quarter: 2016Q2

REPORT INFORMATION
  Report Type: Spontaneous
  Country: US (occurrence: US)
  Receive Date: 20160629
  Receipt Date: 20160629
  Transmission Date: 20160815
  Serious: Yes (Hospitalization)
  Sender: FDA-Public Use
  Company Number: US-GLAXOSMITHKLINE-US2016092000

PATIENT
  Sex: Female

DRUGS (1)
  1. BENLYSTA [Suspect]
     Active Substance: BELIMUMAB
     Indication: SYSTEMIC LUPUS ERYTHEMATOSUS
     Dosage: UNK, CYC
     Route: 042
     Dates: end: 2015

REACTIONS (5)
  - Peripheral vascular disorder [Unknown]
  - Erythema [Recovered/Resolved]
  - Infection [Recovering/Resolving]
  - Swelling [Recovered/Resolved]
  - Wound [Recovering/Resolving]
